FAERS Safety Report 15780429 (Version 1)
Quarter: 2019Q1

REPORT INFORMATION
  Report Type: Report from Study
  Country: US (occurrence: US)
  Receive Date: 20190102
  Receipt Date: 20190102
  Transmission Date: 20190417
  Serious: No
  Sender: FDA-Public Use
  Company Number: PHEH2018US055221

PATIENT
  Sex: Female
  Weight: 169.16 kg

DRUGS (1)
  1. ILARIS [Suspect]
     Active Substance: CANAKINUMAB
     Indication: PRODUCT USED FOR UNKNOWN INDICATION
     Dosage: 300 MG/KG, EVERY 8 WEEKS
     Route: 058

REACTIONS (2)
  - Urticaria [Unknown]
  - Urinary tract infection [Unknown]
